FAERS Safety Report 15112630 (Version 2)
Quarter: 2018Q3

REPORT INFORMATION
  Report Type: Spontaneous
  Country: US (occurrence: US)
  Receive Date: 20180705
  Receipt Date: 20180925
  Transmission Date: 20181010
  Serious: No
  Sender: FDA-Public Use
  Company Number: US-BEH-2018092339

PATIENT
  Sex: Female

DRUGS (15)
  1. CHLORHEXIDINE GLUCONATE. [Concomitant]
     Active Substance: CHLORHEXIDINE GLUCONATE
  2. PROAIR HFA [Concomitant]
     Active Substance: ALBUTEROL SULFATE
  3. AMOXICILLIN. [Concomitant]
     Active Substance: AMOXICILLIN
  4. HAEGARDA [Suspect]
     Active Substance: HUMAN C1-ESTERASE INHIBITOR
     Indication: PROPHYLAXIS
     Dosage: 4000 IU (2 X 2000 UNITS), BIW, EVERY 3?4 DAYS
     Route: 058
  5. HAEGARDA [Suspect]
     Active Substance: HUMAN C1-ESTERASE INHIBITOR
     Indication: HEREDITARY ANGIOEDEMA
     Dosage: 4000 IU (2 X 2000 UNITS), BIW, EVERY 3?4 DAYS
     Route: 058
  6. METRONIDAZOL                       /00012502/ [Concomitant]
     Dosage: 500 MG, TAB, UNK
     Route: 065
  7. FLUTICASONE PROPIONATE. [Concomitant]
     Active Substance: FLUTICASONE PROPIONATE
  8. HYDROCODONE BITARTRATE AND ACETAMINOPHEN [Concomitant]
     Active Substance: ACETAMINOPHEN\HYDROCODONE BITARTRATE
  9. EPIPEN [Concomitant]
     Active Substance: EPINEPHRINE
  10. SERTRALINE HCL [Concomitant]
     Active Substance: SERTRALINE HYDROCHLORIDE
  11. OMEPRAZOLE. [Concomitant]
     Active Substance: OMEPRAZOLE
  12. MONTELUKAST SODIUM. [Concomitant]
     Active Substance: MONTELUKAST SODIUM
  13. KALBITOR [Concomitant]
     Active Substance: ECALLANTIDE
  14. CLOPIDOGREL [Concomitant]
     Active Substance: CLOPIDOGREL BISULFATE
  15. TRAZODONE HYDROCHLORIDE. [Concomitant]
     Active Substance: TRAZODONE HYDROCHLORIDE

REACTIONS (4)
  - Infusion site pain [Unknown]
  - Injection site irritation [Recovered/Resolved]
  - Injection site swelling [Recovered/Resolved]
  - Infusion site swelling [Unknown]
